FAERS Safety Report 9470434 (Version 7)
Quarter: 2016Q1

REPORT INFORMATION
  Report Type: Report from Study
  Country: DE (occurrence: DE)
  Receive Date: 20130822
  Receipt Date: 20160210
  Transmission Date: 20160526
  Serious: Yes (Life-Threatening, Hospitalization)
  Sender: FDA-Public Use
  Company Number: DE-009507513-1308DEU008498

PATIENT
  Age: 61 Year
  Sex: Female
  Weight: 73 kg

DRUGS (12)
  1. RIBAVIRIN. [Suspect]
     Active Substance: RIBAVIRIN
     Dosage: 1000 MG, UNK (MOST RECENT DOSE WAS REPORTED TO BE ON 13-AUG-2013
     Route: 048
  2. SPIRONOLACTONE. [Suspect]
     Active Substance: SPIRONOLACTONE
     Dosage: 50 MG
     Route: 065
     Dates: start: 20130905
  3. RIBAVIRIN. [Suspect]
     Active Substance: RIBAVIRIN
     Dosage: 1000 MG, UNK (MOST RECENT DOSE WAS REPORTED TO BE ON 04-SEP-2013
     Route: 048
     Dates: start: 20130420, end: 20130905
  4. BOCEPREVIR [Suspect]
     Active Substance: BOCEPREVIR
     Dosage: 800 MG, TID (ALSO REPORTED MOST RECENT DOSE ON 04-SEP-2013)
     Route: 048
     Dates: end: 20130905
  5. PANTOPRAZOLE [Suspect]
     Active Substance: PANTOPRAZOLE SODIUM
     Indication: GASTRITIS
     Dosage: 40 MG, QD
     Route: 048
     Dates: start: 20120501, end: 20130813
  6. PEGINTERFERON ALFA-2A [Suspect]
     Active Substance: PEGINTERFERON ALFA-2A
     Indication: CHRONIC HEPATITIS C
     Dosage: 180 MICROGRAM, QW
     Route: 058
     Dates: start: 20130517
  7. PEGINTERFERON ALFA-2A [Suspect]
     Active Substance: PEGINTERFERON ALFA-2A
     Dosage: 180 MICROGRAM, ALSO REPORTED MOST RECENT DOSE ON 04-SEP-2013
     Route: 058
     Dates: start: 20130521, end: 20130905
  8. SPIRONOLACTONE. [Suspect]
     Active Substance: SPIRONOLACTONE
     Indication: HEPATIC CIRRHOSIS
     Dosage: 100 MG, QD
     Route: 048
     Dates: start: 20120501, end: 20130904
  9. RIBAVIRIN. [Suspect]
     Active Substance: RIBAVIRIN
     Indication: CHRONIC HEPATITIS C
     Dosage: 200 MG, QID
     Route: 048
     Dates: start: 20130419
  10. RIBAVIRIN. [Suspect]
     Active Substance: RIBAVIRIN
     Dosage: 400 MG, BID
     Route: 048
  11. BOCEPREVIR [Suspect]
     Active Substance: BOCEPREVIR
     Indication: CHRONIC HEPATITIS C
     Dosage: 200 MG, 2 IN ONE DAY
     Route: 048
     Dates: start: 20130612
  12. BOCEPREVIR [Suspect]
     Active Substance: BOCEPREVIR
     Dosage: 2400MG DAILY DOSE, MOST RECENT DOSE ON 04-SEP-2013
     Route: 048
     Dates: start: 20130612

REACTIONS (12)
  - Asthenia [Not Recovered/Not Resolved]
  - Decreased appetite [Recovered/Resolved]
  - Dehydration [Unknown]
  - Myalgia [Recovered/Resolved]
  - Hyponatraemia [Unknown]
  - Anaemia [Recovered/Resolved]
  - Asthenia [Unknown]
  - Rhabdomyolysis [Recovering/Resolving]
  - Hyponatraemia [Not Recovered/Not Resolved]
  - Fatigue [Recovered/Resolved]
  - Decreased appetite [Unknown]
  - Dehydration [Recovered/Resolved]

NARRATIVE: CASE EVENT DATE: 20130520
